FAERS Safety Report 9051003 (Version 3)
Quarter: 2013Q1

REPORT INFORMATION
  Report Type: Spontaneous
  Country: FR (occurrence: FR)
  Receive Date: 20130205
  Receipt Date: 20130219
  Transmission Date: 20140127
  Serious: Yes (Hospitalization)
  Sender: FDA-Public Use
  Company Number: FR-PFIZER INC-2013038322

PATIENT
  Age: 85 Year
  Sex: Female

DRUGS (6)
  1. CAMPTO [Suspect]
     Indication: ADENOCARCINOMA
     Dosage: 250 MG, (FREQUENCY UNSPECIFIED)
     Route: 041
  2. CAMPTO [Suspect]
     Dosage: 250 MG, (FREQUENCY UNSPECIFIED)
     Route: 041
     Dates: start: 20120828
  3. CAMPTO [Suspect]
     Dosage: 250 MG, (FREQUENCY UNSPECIFIED)
     Route: 041
     Dates: start: 20120911, end: 20120911
  4. METHYLPREDNISOLONE MERCK [Concomitant]
     Dosage: 60 MG, UNK
  5. POLARAMINE [Concomitant]
     Indication: PREMEDICATION
     Dosage: 5 MG, UNK
  6. PARACETAMOL [Concomitant]
     Indication: PREMEDICATION
     Dosage: 1 G, UNK
     Route: 042

REACTIONS (3)
  - Back pain [Recovered/Resolved]
  - Blood pressure increased [Recovered/Resolved]
  - Back pain [Unknown]
